FAERS Safety Report 8578919-X (Version None)
Quarter: 2012Q3

REPORT INFORMATION
  Report Type: 
  Country: None (occurrence: None)
  Receive Date: 20120808
  Receipt Date: 20120730
  Transmission Date: 20120928
  Serious: Yes (Hospitalization)
  Sender: FDA-Public Use
  Company Number: BR-AMGEN-BRASP2012001537

PATIENT
  Age: 60 Year
  Sex: Female
  Weight: 80 kg

DRUGS (8)
  1. ENBREL [Suspect]
     Dosage: 50 MG, ONCE WEEKLY
     Route: 058
     Dates: end: 20120101
  2. ENBREL [Suspect]
     Indication: RHEUMATOID ARTHRITIS
     Dosage: 50 MG, 1X/WEEK
     Route: 058
     Dates: start: 20110411
  3. SIMVASTATIN [Concomitant]
     Dosage: UNK
  4. HIDRION [Concomitant]
  5. PRELONE                            /00016201/ [Concomitant]
     Dosage: UNK
  6. LOSARTAN POTASSIUM [Concomitant]
     Dosage: 50 MG
  7. FOLACIN                            /00024201/ [Concomitant]
     Dosage: UNK
  8. METFORMIN HYDROCHLORIDE [Concomitant]
     Dosage: UNK

REACTIONS (4)
  - CYSTITIS [None]
  - INFECTION [None]
  - WEIGHT INCREASED [None]
  - MUSCULOSKELETAL PAIN [None]
